FAERS Safety Report 18651862 (Version 1)
Quarter: 2020Q4

REPORT INFORMATION
  Report Type: Spontaneous
  Country: US (occurrence: US)
  Receive Date: 20201222
  Receipt Date: 20201222
  Transmission Date: 20210114
  Serious: Yes (Hospitalization)
  Sender: FDA-Public Use
  Company Number: US-CELGENEUS-USA-20201205022

PATIENT
  Age: 83 Year
  Sex: Female
  Weight: 76.27 kg

DRUGS (66)
  1. ALBUTEROL. [Concomitant]
     Active Substance: ALBUTEROL
     Indication: PRODUCT USED FOR UNKNOWN INDICATION
     Route: 065
  2. CITALOPRAM [Concomitant]
     Active Substance: CITALOPRAM HYDROBROMIDE
     Route: 065
  3. PRILOSEC [Concomitant]
     Active Substance: OMEPRAZOLE MAGNESIUM
     Indication: PRODUCT USED FOR UNKNOWN INDICATION
     Route: 065
  4. PLAQUENIL [Concomitant]
     Active Substance: HYDROXYCHLOROQUINE SULFATE
     Route: 065
  5. VITAMIN D [Concomitant]
     Active Substance: VITAMIN D NOS
     Route: 065
  6. BUMETANIDE. [Concomitant]
     Active Substance: BUMETANIDE
     Indication: PRODUCT USED FOR UNKNOWN INDICATION
     Route: 065
  7. BUMETANIDE. [Concomitant]
     Active Substance: BUMETANIDE
     Route: 065
  8. CITALOPRAM [Concomitant]
     Active Substance: CITALOPRAM HYDROBROMIDE
     Route: 065
  9. IRON [Concomitant]
     Active Substance: IRON
     Indication: PRODUCT USED FOR UNKNOWN INDICATION
     Route: 065
  10. IRON [Concomitant]
     Active Substance: IRON
     Route: 065
  11. ISORORBIDE MONONITRATE [Concomitant]
     Route: 065
  12. LISINOPRIL. [Concomitant]
     Active Substance: LISINOPRIL
     Indication: PRODUCT USED FOR UNKNOWN INDICATION
     Route: 065
  13. LISINOPRIL. [Concomitant]
     Active Substance: LISINOPRIL
     Route: 065
  14. PRILOSEC [Concomitant]
     Active Substance: OMEPRAZOLE MAGNESIUM
     Route: 065
  15. VITAMIN B [Concomitant]
     Active Substance: VITAMIN B
     Route: 065
  16. REVLIMID [Suspect]
     Active Substance: LENALIDOMIDE
     Dosage: 10 MILLIGRAM
     Route: 048
     Dates: start: 202009
  17. ATIVAN [Concomitant]
     Active Substance: LORAZEPAM
     Indication: PRODUCT USED FOR UNKNOWN INDICATION
     Route: 065
  18. ATIVAN [Concomitant]
     Active Substance: LORAZEPAM
     Route: 065
  19. BUMETANIDE. [Concomitant]
     Active Substance: BUMETANIDE
     Route: 065
  20. DECADRON [Concomitant]
     Active Substance: DEXAMETHASONE
     Route: 065
  21. PLAQUENIL [Concomitant]
     Active Substance: HYDROXYCHLOROQUINE SULFATE
     Route: 065
  22. EPO [Concomitant]
     Active Substance: ERYTHROPOIETIN
     Route: 065
  23. VITAMIN D [Concomitant]
     Active Substance: VITAMIN D NOS
     Indication: PRODUCT USED FOR UNKNOWN INDICATION
     Route: 065
  24. REVLIMID [Suspect]
     Active Substance: LENALIDOMIDE
     Indication: PLASMA CELL MYELOMA
     Dosage: 25 MILLIGRAM
     Route: 048
     Dates: start: 20200128
  25. ADAVIR [Concomitant]
     Route: 065
  26. DECADRON [Concomitant]
     Active Substance: DEXAMETHASONE
     Indication: PRODUCT USED FOR UNKNOWN INDICATION
     Route: 065
  27. IRON [Concomitant]
     Active Substance: IRON
     Route: 065
  28. PLAQUENIL [Concomitant]
     Active Substance: HYDROXYCHLOROQUINE SULFATE
     Indication: PRODUCT USED FOR UNKNOWN INDICATION
     Route: 065
  29. COMPAZINE [Concomitant]
     Active Substance: PROCHLORPERAZINE MALEATE
     Route: 065
  30. COMPAZINE [Concomitant]
     Active Substance: PROCHLORPERAZINE MALEATE
     Route: 065
  31. COMPAZINE [Concomitant]
     Active Substance: PROCHLORPERAZINE MALEATE
     Route: 065
  32. EPO [Concomitant]
     Active Substance: ERYTHROPOIETIN
     Indication: PRODUCT USED FOR UNKNOWN INDICATION
     Route: 065
  33. EPO [Concomitant]
     Active Substance: ERYTHROPOIETIN
     Route: 065
  34. VITAMIN D [Concomitant]
     Active Substance: VITAMIN D NOS
     Route: 065
  35. ACYCLOVIR. [Concomitant]
     Active Substance: ACYCLOVIR
     Route: 065
  36. ATIVAN [Concomitant]
     Active Substance: LORAZEPAM
     Route: 065
  37. ATIVAN [Concomitant]
     Active Substance: LORAZEPAM
     Route: 065
  38. BUMETANIDE. [Concomitant]
     Active Substance: BUMETANIDE
     Route: 065
  39. CITALOPRAM [Concomitant]
     Active Substance: CITALOPRAM HYDROBROMIDE
     Indication: PRODUCT USED FOR UNKNOWN INDICATION
     Route: 065
  40. PRILOSEC [Concomitant]
     Active Substance: OMEPRAZOLE MAGNESIUM
     Route: 065
  41. EPO [Concomitant]
     Active Substance: ERYTHROPOIETIN
     Route: 065
  42. VITAMIN B [Concomitant]
     Active Substance: VITAMIN B
     Indication: PRODUCT USED FOR UNKNOWN INDICATION
     Route: 065
  43. ACYCLOVIR. [Concomitant]
     Active Substance: ACYCLOVIR
     Indication: PRODUCT USED FOR UNKNOWN INDICATION
     Route: 065
  44. ADAVIR [Concomitant]
     Route: 065
  45. ISORORBIDE MONONITRATE [Concomitant]
     Indication: PRODUCT USED FOR UNKNOWN INDICATION
     Route: 065
  46. ISORORBIDE MONONITRATE [Concomitant]
     Route: 065
  47. LISINOPRIL. [Concomitant]
     Active Substance: LISINOPRIL
     Route: 065
  48. COMPAZINE [Concomitant]
     Active Substance: PROCHLORPERAZINE MALEATE
     Indication: PRODUCT USED FOR UNKNOWN INDICATION
     Route: 065
  49. ACYCLOVIR. [Concomitant]
     Active Substance: ACYCLOVIR
     Route: 065
  50. ADAVIR [Concomitant]
     Indication: PRODUCT USED FOR UNKNOWN INDICATION
     Route: 065
  51. ALBUTEROL. [Concomitant]
     Active Substance: ALBUTEROL
     Route: 065
  52. CITALOPRAM [Concomitant]
     Active Substance: CITALOPRAM HYDROBROMIDE
     Route: 065
  53. IRON [Concomitant]
     Active Substance: IRON
     Route: 065
  54. LISINOPRIL. [Concomitant]
     Active Substance: LISINOPRIL
     Route: 065
  55. PLAQUENIL [Concomitant]
     Active Substance: HYDROXYCHLOROQUINE SULFATE
     Route: 065
  56. VITAMIN B [Concomitant]
     Active Substance: VITAMIN B
     Route: 065
  57. VITAMIN B [Concomitant]
     Active Substance: VITAMIN B
     Route: 065
  58. ACYCLOVIR. [Concomitant]
     Active Substance: ACYCLOVIR
     Route: 065
  59. ADAVIR [Concomitant]
     Route: 065
  60. ALBUTEROL. [Concomitant]
     Active Substance: ALBUTEROL
     Route: 065
  61. ALBUTEROL. [Concomitant]
     Active Substance: ALBUTEROL
     Route: 065
  62. DECADRON [Concomitant]
     Active Substance: DEXAMETHASONE
     Route: 065
  63. DECADRON [Concomitant]
     Active Substance: DEXAMETHASONE
     Route: 065
  64. ISORORBIDE MONONITRATE [Concomitant]
     Route: 065
  65. PRILOSEC [Concomitant]
     Active Substance: OMEPRAZOLE MAGNESIUM
     Route: 065
  66. VITAMIN D [Concomitant]
     Active Substance: VITAMIN D NOS
     Route: 065

REACTIONS (1)
  - Colitis ischaemic [Not Recovered/Not Resolved]

NARRATIVE: CASE EVENT DATE: 20201120
